FAERS Safety Report 14853272 (Version 6)
Quarter: 2018Q2

REPORT INFORMATION
  Report Type: Spontaneous
  Country: US (occurrence: US)
  Receive Date: 20180507
  Receipt Date: 20180622
  Transmission Date: 20180711
  Serious: No
  Sender: FDA-Public Use
  Company Number: PHEH2018US016604

PATIENT
  Age: 85 Year
  Sex: Male
  Weight: 70 kg

DRUGS (3)
  1. LUMIGAN [Concomitant]
     Active Substance: BIMATOPROST
     Indication: PRODUCT USED FOR UNKNOWN INDICATION
     Route: 065
  2. TIMOLOL. [Concomitant]
     Active Substance: TIMOLOL
     Indication: PRODUCT USED FOR UNKNOWN INDICATION
     Route: 065
  3. SIMBRINZA [Suspect]
     Active Substance: BRIMONIDINE TARTRATE\BRINZOLAMIDE
     Indication: GLAUCOMA
     Dosage: UNK UNK, TID
     Route: 047
     Dates: start: 20170628

REACTIONS (8)
  - Product dropper issue [Unknown]
  - Skin irritation [Unknown]
  - Erythema of eyelid [Recovered/Resolved]
  - Rash [Recovered/Resolved]
  - Scar [Recovered/Resolved]
  - Pain of skin [Unknown]
  - Ocular hyperaemia [Unknown]
  - Eye irritation [Unknown]

NARRATIVE: CASE EVENT DATE: 20180216
